FAERS Safety Report 13949030 (Version 1)
Quarter: 2017Q3

REPORT INFORMATION
  Report Type: Report from Study
  Country: BE (occurrence: BE)
  Receive Date: 20170908
  Receipt Date: 20170908
  Transmission Date: 20171128
  Serious: Yes (Hospitalization)
  Sender: FDA-Public Use
  Company Number: BE-ROCHE-1988360

PATIENT
  Age: 67 Year
  Sex: Female
  Weight: 110 kg

DRUGS (13)
  1. COVERAM [Concomitant]
     Active Substance: AMLODIPINE\PERINDOPRIL
     Dosage: 5/5
     Route: 065
     Dates: start: 201601
  2. L-THYROXINE [Concomitant]
     Active Substance: LEVOTHYROXINE
     Route: 065
     Dates: start: 201612
  3. 5-FLUOROURACIL [Suspect]
     Active Substance: FLUOROURACIL
     Indication: HER-2 POSITIVE BREAST CANCER
     Dosage: DATE OF LAST DOSE OF A PRIOR TO SERIOUS ADVERSE EVENT (SAE): 19/DEC/2012
     Route: 042
     Dates: start: 20121107
  4. GLUCOPHAGE [Concomitant]
     Active Substance: METFORMIN HYDROCHLORIDE
     Route: 065
     Dates: start: 2006
  5. CYCLOPHOSPHAMIDE. [Suspect]
     Active Substance: CYCLOPHOSPHAMIDE
     Indication: HER-2 POSITIVE BREAST CANCER
     Dosage: DATE OF LAST DOSE OF A PRIOR TO SERIOUS ADVERSE EVENT (SAE): 19/DEC/2012
     Route: 042
     Dates: start: 20121107
  6. CRESTOR [Concomitant]
     Active Substance: ROSUVASTATIN CALCIUM
     Route: 065
     Dates: start: 2006
  7. PLACEBO [Suspect]
     Active Substance: UNSPECIFIED INGREDIENT
     Dosage: MOST RECENT DOSE OF STUDY PRIOR TO SERIOUS ADVERSE EVENT (SAE): 04/SEP/2013
     Route: 042
  8. TRASTUZUMAB. [Suspect]
     Active Substance: TRASTUZUMAB
     Indication: HER-2 POSITIVE BREAST CANCER
     Dosage: LOADING DOSE OF 8 MILLIGRAMS PER KILOGRAM (MG/KG)
     Route: 042
     Dates: start: 20130111
  9. FEMARA [Concomitant]
     Active Substance: LETROZOLE
     Route: 065
     Dates: start: 20130418
  10. TRASTUZUMAB. [Suspect]
     Active Substance: TRASTUZUMAB
     Dosage: DATE OF MOST RECENT DOSE OF STUDY PRIOR TO SERIOUS ADVERSE EVENT (SAE): 04/SEP/2013?MAINTENANCE DOSE
     Route: 042
  11. EPIRUBICIN [Suspect]
     Active Substance: EPIRUBICIN
     Indication: HER-2 POSITIVE BREAST CANCER
     Dosage: DATE OF LAST DOSE OF A PRIOR TO SERIOUS ADVERSE EVENT (SAE): 19/DEC/2012
     Route: 042
     Dates: start: 20121107
  12. ISOTEN [Concomitant]
     Route: 065
     Dates: start: 20130924
  13. PLACEBO [Suspect]
     Active Substance: UNSPECIFIED INGREDIENT
     Indication: HER-2 POSITIVE BREAST CANCER
     Dosage: LOADING DOSE
     Route: 042
     Dates: start: 20130111

REACTIONS (1)
  - Syncope [Unknown]

NARRATIVE: CASE EVENT DATE: 20170711
